FAERS Safety Report 7109709-2 (Version None)
Quarter: 2010Q4

REPORT INFORMATION
  Report Type: 
  Country: None (occurrence: None)
  Receive Date: 20101116
  Receipt Date: 20101116
  Transmission Date: 20110411
  Serious: Yes (Life-Threatening, Hospitalization, Other)
  Sender: FDA-Public Use
  Company Number: None

PATIENT
  Age: 75 Year
  Sex: Female

DRUGS (1)
  1. LOVENOX [Suspect]
     Dosage: 1 MG/KG SUBQ BID
     Route: 058
     Dates: start: 20100728, end: 20100801

REACTIONS (2)
  - HYPOTENSION [None]
  - RETROPERITONEAL HAEMORRHAGE [None]
